FAERS Safety Report 13662629 (Version 1)
Quarter: 2017Q2

REPORT INFORMATION
  Report Type: Spontaneous
  Country: US (occurrence: US)
  Receive Date: 20170616
  Receipt Date: 20170616
  Transmission Date: 20170830
  Serious: Yes (Life-Threatening)
  Sender: FDA-Public Use
  Company Number: None

PATIENT
  Age: 72 Year
  Sex: Male
  Weight: 70 kg

DRUGS (3)
  1. LEVOFLOXACIN. [Suspect]
     Active Substance: LEVOFLOXACIN
     Indication: UPPER RESPIRATORY TRACT INFECTION
     Dosage: 750 MG OTHER IV
     Route: 042
     Dates: start: 20170328, end: 20170330
  2. LEVOFLOXACIN. [Suspect]
     Active Substance: LEVOFLOXACIN
     Indication: PNEUMONIA BACTERIAL
     Dosage: 750 MG OTHER IV
     Route: 042
     Dates: start: 20170328, end: 20170330
  3. LEVOFLOXACIN. [Suspect]
     Active Substance: LEVOFLOXACIN
     Indication: STENOTROPHOMONAS INFECTION
     Dosage: 750 MG OTHER IV
     Route: 042
     Dates: start: 20170328, end: 20170330

REACTIONS (2)
  - Stenotrophomonas infection [None]
  - Hypoglycaemia [None]

NARRATIVE: CASE EVENT DATE: 20170329
